FAERS Safety Report 16117847 (Version 1)
Quarter: 2019Q1

REPORT INFORMATION
  Report Type: Spontaneous
  Country: US (occurrence: US)
  Receive Date: 20190326
  Receipt Date: 20190326
  Transmission Date: 20190418
  Serious: Yes (Hospitalization)
  Sender: FDA-Public Use
  Company Number: US-TEVA-2019-US-1030000

PATIENT
  Age: 42 Year
  Sex: Female

DRUGS (1)
  1. CAPECITABINE. [Suspect]
     Active Substance: CAPECITABINE
     Indication: CHOLANGIOCARCINOMA
     Dosage: 3000 MILLIGRAM DAILY; 14-DAY CYCLES REPEATING EVERY 28 DAYS.
     Route: 065

REACTIONS (1)
  - Cytomegalovirus gastrointestinal infection [Recovering/Resolving]
